FAERS Safety Report 7610258-3 (Version None)
Quarter: 2011Q3

REPORT INFORMATION
  Report Type: 
  Country: None (occurrence: None)
  Receive Date: 20110706
  Receipt Date: 20110629
  Transmission Date: 20111222
  Serious: Yes (Hospitalization)
  Sender: FDA-Public Use
  Company Number: 1000021868

PATIENT
  Age: 51 Year
  Sex: Male

DRUGS (3)
  1. CLONAZEPAM [Suspect]
     Dosage: 60 DROPS OF 2.5 MG/ML (60 GTY,1 IN 1 D),ORAL
     Route: 048
     Dates: start: 20110526, end: 20110530
  2. MILNACIPRAN (MILNACIPRAN HYDROCHLORIDE) (50 MILLIGRAM, CAPSULES) [Suspect]
     Dosage: 100 MG (100 MG,1 IN 1 D),ORAL
     Route: 048
     Dates: start: 20110516, end: 20110528
  3. TEGRETOL [Suspect]
     Dosage: 100 MG (100 MG,1 IN 1 D),ORAL
     Route: 048
     Dates: start: 20110526, end: 20110530

REACTIONS (8)
  - RASH GENERALISED [None]
  - PURPURA [None]
  - BURNING SENSATION [None]
  - EYELID OEDEMA [None]
  - ASTHENIA [None]
  - RASH PUSTULAR [None]
  - STAPHYLOCOCCAL INFECTION [None]
  - CONJUNCTIVITIS [None]
